FAERS Safety Report 6188828-1 (Version None)
Quarter: 2009Q2

REPORT INFORMATION
  Report Type: 
  Country: None (occurrence: None)
  Receive Date: 20090513
  Receipt Date: 20090506
  Transmission Date: 20091009
  Serious: Yes (Other)
  Sender: FDA-Public Use
  Company Number: CH-PFIZER INC-2009209276

PATIENT

DRUGS (1)
  1. FRAGMIN [Suspect]
     Dosage: 15000 IU, UNK

REACTIONS (1)
  - MUSCLE SPASMS [None]
